FAERS Safety Report 18066215 (Version 1)
Quarter: 2020Q3

REPORT INFORMATION
  Report Type: Spontaneous
  Country: US (occurrence: US)
  Receive Date: 20200724
  Receipt Date: 20200724
  Transmission Date: 20201103
  Serious: No
  Sender: FDA-Public Use
  Company Number: NVSC2020US208944

PATIENT
  Sex: Female

DRUGS (1)
  1. VOLTAREN EMULGEL [Suspect]
     Active Substance: DICLOFENAC DIETHYLAMINE
     Indication: BACK DISORDER
     Dosage: UNK
     Route: 065

REACTIONS (2)
  - Product administered at inappropriate site [Unknown]
  - Product use in unapproved indication [Unknown]
